FAERS Safety Report 4894793-7 (Version None)
Quarter: 2006Q1

REPORT INFORMATION
  Report Type: 
  Country: None (occurrence: None)
  Receive Date: 20060126
  Receipt Date: 20060126
  Transmission Date: 20060701
  Serious: Yes (Hospitalization)
  Sender: FDA-Public Use
  Company Number: None

PATIENT
  Age: 31 Year
  Sex: Female
  Weight: 52.1637 kg

DRUGS (1)
  1. CAPZASIN HP    0.1    CHATTEM.INC.    OTC [Suspect]
     Indication: FIBROMYALGIA
     Dosage: CREAM    AS NEEDED
     Dates: start: 20051220, end: 20060125

REACTIONS (4)
  - APPLICATION SITE BURN [None]
  - CAUSTIC INJURY [None]
  - NO REACTION ON PREVIOUS EXPOSURE TO DRUG [None]
  - PAIN [None]
